FAERS Safety Report 21336554 (Version 17)
Quarter: 2022Q4

REPORT INFORMATION
  Report Type: Report from Study
  Country: BR (occurrence: None)
  Receive Date: 20220915
  Receipt Date: 20221222
  Transmission Date: 20230113
  Serious: Yes (Death, Life-Threatening, Hospitalization, Disabling)
  Sender: FDA-Public Use
  Company Number: BR-Eisai Medical Research-EC-2022-123344

PATIENT
  Age: 36 Year
  Sex: Female
  Weight: 94.4 kg

DRUGS (7)
  1. LENVATINIB [Suspect]
     Active Substance: LENVATINIB
     Indication: Clear cell renal cell carcinoma
     Route: 048
     Dates: start: 20220825, end: 20220907
  2. PEMBROLIZUMAB [Suspect]
     Active Substance: PEMBROLIZUMAB
     Indication: Clear cell renal cell carcinoma
     Route: 041
     Dates: start: 20220825, end: 20220825
  3. BELZUTIFAN [Suspect]
     Active Substance: BELZUTIFAN
     Indication: Clear cell renal cell carcinoma
     Route: 048
     Dates: start: 20220825, end: 20220907
  4. VENLAFAXINE HYDROCHLORIDE [Concomitant]
     Active Substance: VENLAFAXINE HYDROCHLORIDE
     Dates: start: 202207
  5. HYDROCHLOROTHIAZIDE [Concomitant]
     Active Substance: HYDROCHLOROTHIAZIDE
     Dates: start: 201801
  6. ALBUTEROL [Concomitant]
     Active Substance: ALBUTEROL
     Dates: start: 198801
  7. ENALAPRIL [Concomitant]
     Active Substance: ENALAPRIL
     Dates: start: 20220831

REACTIONS (6)
  - Encephalitis [Fatal]
  - Shock [Not Recovered/Not Resolved]
  - Hypoxia [Recovered/Resolved]
  - Meningitis [Recovered/Resolved with Sequelae]
  - Cardio-respiratory arrest [Recovered/Resolved]
  - Aspartate aminotransferase increased [Recovered/Resolved]

NARRATIVE: CASE EVENT DATE: 20220905
